FAERS Safety Report 18494830 (Version 1)
Quarter: 2020Q4

REPORT INFORMATION
  Report Type: Spontaneous
  Country: US (occurrence: US)
  Receive Date: 20201112
  Receipt Date: 20201112
  Transmission Date: 20210114
  Serious: No
  Sender: FDA-Public Use
  Company Number: US-TEVA-2020-US-1847140

PATIENT
  Age: 21 Year
  Sex: Female

DRUGS (1)
  1. JUNEL [Suspect]
     Active Substance: ETHINYL ESTRADIOL\NORETHINDRONE ACETATE
     Route: 065
     Dates: start: 202005, end: 20201102

REACTIONS (3)
  - Mouth ulceration [Recovered/Resolved]
  - Product dose omission issue [Unknown]
  - Malaise [Unknown]
